FAERS Safety Report 17741665 (Version 3)
Quarter: 2020Q3

REPORT INFORMATION
  Report Type: Spontaneous
  Country: US (occurrence: US)
  Receive Date: 20200504
  Receipt Date: 20200701
  Transmission Date: 20201102
  Serious: Yes (Hospitalization)
  Sender: FDA-Public Use
  Company Number: US-GLOBAL BLOOD THERAPEUTICS INC-US-GBT-20-00817

PATIENT
  Age: 25 Year
  Sex: Male

DRUGS (6)
  1. DILAUDID [Suspect]
     Active Substance: HYDROMORPHONE HYDROCHLORIDE
     Indication: PAIN
  2. OXBRYTA [Suspect]
     Active Substance: VOXELOTOR
     Indication: SICKLE CELL DISEASE
     Route: 048
     Dates: start: 20200326, end: 20200401
  3. OXBRYTA [Suspect]
     Active Substance: VOXELOTOR
     Dates: start: 20200401
  4. OXYCODONE [Suspect]
     Active Substance: OXYCODONE
     Indication: PAIN
  5. OXYCODONE [Suspect]
     Active Substance: OXYCODONE
     Indication: SICKLE CELL ANAEMIA WITH CRISIS
  6. DILAUDID [Suspect]
     Active Substance: HYDROMORPHONE HYDROCHLORIDE
     Indication: SICKLE CELL ANAEMIA WITH CRISIS

REACTIONS (7)
  - Sickle cell anaemia with crisis [Unknown]
  - Pneumonia [Unknown]
  - Drug interaction [Unknown]
  - Abdominal discomfort [Unknown]
  - Sepsis [Unknown]
  - Heart rate decreased [Unknown]
  - Product dose omission issue [Unknown]

NARRATIVE: CASE EVENT DATE: 2020
